FAERS Safety Report 9651468 (Version 1)
Quarter: 2013Q4

REPORT INFORMATION
  Report Type: Spontaneous
  Country: GR (occurrence: GR)
  Receive Date: 20131029
  Receipt Date: 20131029
  Transmission Date: 20140711
  Serious: Yes (Other)
  Sender: FDA-Public Use
  Company Number: GR-AMGEN-GRCSP2013076299

PATIENT
  Age: 62 Year
  Sex: Male

DRUGS (5)
  1. ENBREL [Suspect]
     Indication: ANKYLOSING SPONDYLITIS
     Dosage: UNK
     Route: 065
  2. LYRICA [Concomitant]
     Dosage: UNK
  3. PLAVIX [Concomitant]
     Dosage: UNK
  4. INEGY [Concomitant]
     Dosage: UNK
  5. LOPRESOR                           /00376902/ [Concomitant]
     Dosage: UNK

REACTIONS (3)
  - Urinary retention [Unknown]
  - Pseudomonas infection [Unknown]
  - Urinary tract infection [Unknown]
